FAERS Safety Report 17654077 (Version 1)
Quarter: 2020Q2

REPORT INFORMATION
  Report Type: Report from Study
  Country: US (occurrence: US)
  Receive Date: 20200410
  Receipt Date: 20200410
  Transmission Date: 20200713
  Serious: Yes (Other)
  Sender: FDA-Public Use
  Company Number: US-CURIUM-200900395

PATIENT

DRUGS (1)
  1. OCTREOSCAN [Suspect]
     Active Substance: INDIUM IN-111 CHLORIDE\INDIUM IN-111 PENTETREOTIDE
     Indication: RADIOTHERAPY
     Dosage: UNK

REACTIONS (3)
  - Product use issue [Recovered/Resolved]
  - Embolism [Unknown]
  - Product use in unapproved indication [Recovered/Resolved]
